FAERS Safety Report 8114221 (Version 2)
Quarter: 2016Q3

REPORT INFORMATION
  Report Type: Report from Study
  Country: US (occurrence: US)
  Receive Date: 20110831
  Receipt Date: 20160829
  Transmission Date: 20161109
  Serious: Yes (Hospitalization)
  Sender: FDA-Public Use
  Company Number: US-PFIZER INC-2011127876

PATIENT
  Age: 63 Year
  Sex: Female
  Weight: 83 kg

DRUGS (5)
  1. NEXIUM [Concomitant]
     Active Substance: ESOMEPRAZOLE MAGNESIUM
     Indication: PROPHYLAXIS
     Dosage: 20 TO 40 MG/KG, 1X/DAY
     Route: 048
     Dates: start: 20081121
  2. PERCOCET [Suspect]
     Active Substance: ACETAMINOPHEN\OXYCODONE HYDROCHLORIDE
     Indication: BACK PAIN
     Dosage: 1 DF, 4X/DAY (7.5/500 MG, QID AS NEEDED)
     Route: 048
     Dates: start: 20100719, end: 20110216
  3. CELECOXIB. [Suspect]
     Active Substance: CELECOXIB
     Indication: RHEUMATOID ARTHRITIS
  4. ALPRAZOLAM. [Suspect]
     Active Substance: ALPRAZOLAM
     Indication: ANXIETY
     Dosage: 0.5 MG, AS NEEDED
     Route: 048
     Dates: start: 2007, end: 20110207
  5. CELECOXIB. [Suspect]
     Active Substance: CELECOXIB
     Indication: OSTEOARTHRITIS
     Dosage: UNK UNK, 2X/DAY
     Route: 048
     Dates: start: 20081121, end: 20120719

REACTIONS (1)
  - Mental status changes [Recovered/Resolved]

NARRATIVE: CASE EVENT DATE: 20110206
